FAERS Safety Report 7283131-0 (Version None)
Quarter: 2011Q1

REPORT INFORMATION
  Report Type: 
  Country: None (occurrence: None)
  Receive Date: 20110209
  Receipt Date: 20101116
  Transmission Date: 20110831
  Serious: No
  Sender: FDA-Public Use
  Company Number: A0892925A

PATIENT
  Age: 50 Year
  Sex: Female

DRUGS (1)
  1. PAXIL CR [Suspect]
     Dosage: 25MG UNKNOWN
     Dates: start: 20030724

REACTIONS (7)
  - NAUSEA [None]
  - MALAISE [None]
  - DEHYDRATION [None]
  - WITHDRAWAL SYNDROME [None]
  - COUGH [None]
  - VOMITING [None]
  - CONFUSIONAL STATE [None]
